FAERS Safety Report 14912948 (Version 5)
Quarter: 2018Q2

REPORT INFORMATION
  Report Type: Report from Study
  Country: DE (occurrence: DE)
  Receive Date: 20180518
  Receipt Date: 20180628
  Transmission Date: 20180711
  Serious: Yes (Hospitalization)
  Sender: FDA-Public Use
  Company Number: DE-ROCHE-2123492

PATIENT
  Age: 59 Year
  Sex: Female
  Weight: 54 kg

DRUGS (14)
  1. ATEZOLIZUMAB. [Suspect]
     Active Substance: ATEZOLIZUMAB
     Indication: MALIGNANT MELANOMA
     Dosage: MOST RECENT DOSE WAS ON 24/APR/2018
     Route: 042
     Dates: start: 20180424
  2. COBIMETINIB. [Suspect]
     Active Substance: COBIMETINIB
     Indication: MALIGNANT MELANOMA
     Dosage: MOST RECENT DOSE WAS ON 07/MAY/2018 (60 MG)
     Route: 048
     Dates: start: 20180327
  3. IBUPROFEN. [Concomitant]
     Active Substance: IBUPROFEN
     Indication: BACK PAIN
     Route: 048
  4. BATRAFEN [Concomitant]
     Indication: FUNGAL INFECTION
     Route: 067
     Dates: start: 20180424
  5. IBUPROFEN. [Concomitant]
     Active Substance: IBUPROFEN
     Indication: ARTHRALGIA
  6. AMOCLAV [Concomitant]
     Active Substance: AMOXICILLIN\CLAVULANATE POTASSIUM
     Indication: GENERAL PHYSICAL HEALTH DETERIORATION
     Route: 048
     Dates: start: 20180508, end: 20180510
  7. IBUPROFEN. [Concomitant]
     Active Substance: IBUPROFEN
     Indication: PYREXIA
  8. CLOTRIMAZOL [Concomitant]
     Active Substance: CLOTRIMAZOLE
     Indication: FUNGAL INFECTION
     Route: 048
     Dates: start: 20180423, end: 20180423
  9. VEMURAFENIB. [Suspect]
     Active Substance: VEMURAFENIB
     Indication: MALIGNANT MELANOMA
     Dosage: 4 TABLETS OF VEMURAFENIB ADMINISTERED PRIOR TO SAE ONSET ON 07/MAY/2018
     Route: 048
     Dates: start: 20180327
  10. PANTOZOL [Concomitant]
     Active Substance: PANTOPRAZOLE SODIUM
     Route: 048
     Dates: start: 20180323
  11. AMPHO MORONAL [Concomitant]
     Active Substance: AMPHOTERICIN B
     Indication: FUNGAL INFECTION
     Route: 048
     Dates: start: 20180424
  12. MOMEGALEN [Concomitant]
     Indication: RASH
     Route: 061
     Dates: start: 20180414
  13. NYSTATIN. [Concomitant]
     Active Substance: NYSTATIN
     Indication: FUNGAL INFECTION
     Route: 065
     Dates: start: 20180423, end: 20180423
  14. CLOTRIMAZOL [Concomitant]
     Active Substance: CLOTRIMAZOLE
     Route: 061
     Dates: start: 20180423, end: 20180423

REACTIONS (2)
  - Blood creatine phosphokinase increased [Recovered/Resolved]
  - Systemic inflammatory response syndrome [Recovered/Resolved]

NARRATIVE: CASE EVENT DATE: 20180509
